FAERS Safety Report 6329444-8 (Version None)
Quarter: 2009Q3

REPORT INFORMATION
  Report Type: 
  Country: None (occurrence: None)
  Receive Date: 20090826
  Receipt Date: 20090820
  Transmission Date: 20100115
  Serious: Yes (Hospitalization, Congenital Anomaly)
  Sender: FDA-Public Use
  Company Number: B0589435A

PATIENT
  Sex: Male
  Weight: 3.2 kg

DRUGS (1)
  1. LAMICTAL [Suspect]
     Indication: EPILEPSY
     Dosage: 50MG TWICE PER DAY
     Dates: start: 20070101

REACTIONS (8)
  - APGAR SCORE ABNORMAL [None]
  - DRUG EXPOSURE DURING PREGNANCY [None]
  - FOETAL MALFORMATION [None]
  - GENERALISED OEDEMA [None]
  - HEART DISEASE CONGENITAL [None]
  - LIMB MALFORMATION [None]
  - POLYHYDRAMNIOS [None]
  - PYELOCALIECTASIS [None]
